FAERS Safety Report 5218151-0 (Version None)
Quarter: 2007Q1

REPORT INFORMATION
  Report Type: 
  Country: None (occurrence: None)
  Receive Date: 20061130
  Receipt Date: 20060829
  Transmission Date: 20070707
  Serious: Yes (Hospitalization)
  Sender: FDA-Public Use
  Company Number: US_0506119377

PATIENT
  Age: 38 Year
  Sex: Male
  Weight: 113.4 kg

DRUGS (3)
  1. ZYPREXA [Suspect]
     Dosage: SEE IMAGE
     Dates: end: 20020601
  2. ZYPREXA [Suspect]
     Dosage: SEE IMAGE
     Dates: start: 20010601
  3. ZIPRASIDONE HCL [Concomitant]

REACTIONS (3)
  - DIABETES MELLITUS NON-INSULIN-DEPENDENT [None]
  - OVERWEIGHT [None]
  - PRESCRIBED OVERDOSE [None]
